FAERS Safety Report 15428383 (Version 1)
Quarter: 2018Q3

REPORT INFORMATION
  Report Type: Report from Study
  Country: None (occurrence: ES)
  Receive Date: 20180926
  Receipt Date: 20180926
  Transmission Date: 20181010
  Serious: Yes (Other)
  Sender: FDA-Public Use
  Company Number: ES-ABBVIE-18S-144-2493109-00

PATIENT
  Age: 84 Year
  Sex: Male
  Weight: 80 kg

DRUGS (2)
  1. DUODOPA [Suspect]
     Active Substance: CARBIDOPA\LEVODOPA
     Indication: PARKINSON^S DISEASE
     Route: 050
     Dates: start: 20131105
  2. RIVASTIGMINE. [Concomitant]
     Active Substance: RIVASTIGMINE
     Indication: COGNITIVE DISORDER
     Route: 062
     Dates: start: 20180630

REACTIONS (6)
  - Stoma site pain [Not Recovered/Not Resolved]
  - Vomiting [Unknown]
  - Gastrointestinal haemorrhage [Unknown]
  - Pain [Unknown]
  - Gastrointestinal stoma complication [Unknown]
  - Stoma site odour [Unknown]

NARRATIVE: CASE EVENT DATE: 2018
